FAERS Safety Report 5492677-7 (Version None)
Quarter: 2007Q4

REPORT INFORMATION
  Report Type: 
  Country: None (occurrence: None)
  Receive Date: 20071022
  Receipt Date: 20071010
  Transmission Date: 20080405
  Serious: Yes (Other)
  Sender: FDA-Public Use
  Company Number: US-PFIZER INC-2007087242

PATIENT
  Sex: Female

DRUGS (1)
  1. CHANTIX [Suspect]

REACTIONS (3)
  - EMOTIONAL DISTRESS [None]
  - EUPHORIC MOOD [None]
  - VIOLENCE-RELATED SYMPTOM [None]
